FAERS Safety Report 24325445 (Version 1)
Quarter: 2024Q3

REPORT INFORMATION
  Report Type: Spontaneous
  Country: AU (occurrence: AU)
  Receive Date: 20240917
  Receipt Date: 20240917
  Transmission Date: 20241016
  Serious: Yes (Other)
  Sender: AMGEN
  Company Number: AU-AMGEN-AUSSP2024179825

PATIENT
  Age: 79 Year
  Sex: Female

DRUGS (15)
  1. EVENITY [Suspect]
     Active Substance: ROMOSOZUMAB-AQQG
     Indication: Osteoporosis
     Dosage: UNK UNK, QMO (2 INOCULATIONS ONCE A MONTH)
     Route: 058
     Dates: start: 202407
  2. EVENITY [Suspect]
     Active Substance: ROMOSOZUMAB-AQQG
  3. PROLIA [Suspect]
     Active Substance: DENOSUMAB
     Indication: Product used for unknown indication
     Dosage: UNK
     Route: 065
     Dates: end: 202403
  4. LEVOTHYROXINE [Concomitant]
     Active Substance: LEVOTHYROXINE\LEVOTHYROXINE SODIUM
     Dosage: UNK
  5. ACETAMINOPHEN [Concomitant]
     Active Substance: ACETAMINOPHEN
     Dosage: UNK UNK, UNK
  6. PALEXIA [Concomitant]
     Active Substance: TAPENTADOL HYDROCHLORIDE
     Dosage: 50 MILLIGRAM
  7. Cartia [Concomitant]
     Dosage: 75 MILLIGRAM, BID
  8. AMIODARONE [Concomitant]
     Active Substance: AMIODARONE
     Dosage: 100 MILLIGRAM
  9. FUROSEMIDE [Concomitant]
     Active Substance: FUROSEMIDE
     Dosage: 40 MILLIGRAM (EVERY SECOND DAY)
  10. CALCIUM CARBONATE\CHOLECALCIFEROL [Concomitant]
     Active Substance: CALCIUM CARBONATE\CHOLECALCIFEROL
     Dosage: UNK
  11. PRADAXA [Concomitant]
     Active Substance: DABIGATRAN ETEXILATE MESYLATE
     Dosage: 100 MILLIGRAM
  12. ALVESCO [Concomitant]
     Active Substance: CICLESONIDE
     Dosage: 160 2 INHALATIONS
  13. OXIS [Concomitant]
     Active Substance: FORMOTEROL FUMARATE
     Dosage: ONLY 1 IN THE MORNING AND 1 AT NIGHT
  14. MACU VISION [Concomitant]
     Dosage: 1 DOSAGE FORM
  15. LIPITOR [Concomitant]
     Active Substance: ATORVASTATIN CALCIUM
     Dosage: 20MG AND 40MG

REACTIONS (3)
  - Femur fracture [Unknown]
  - Device breakage [Unknown]
  - Bone loss [Unknown]

NARRATIVE: CASE EVENT DATE: 20230101
